FAERS Safety Report 23393835 (Version 3)
Quarter: 2024Q1

REPORT INFORMATION
  Report Type: Spontaneous
  Country: US (occurrence: US)
  Receive Date: 20240111
  Receipt Date: 20240322
  Transmission Date: 20240410
  Serious: Yes (Hospitalization, Other)
  Sender: FDA-Public Use
  Company Number: US-KARYOPHARM-2023KPT002341

PATIENT

DRUGS (27)
  1. XPOVIO [Suspect]
     Active Substance: SELINEXOR
     Indication: Plasma cell myeloma
     Dosage: 60 MG, WEEKLY
     Route: 048
     Dates: start: 20231030
  2. ZELTAS [Concomitant]
  3. OLANZAPINE [Concomitant]
     Active Substance: OLANZAPINE
  4. TRAMADOL [Concomitant]
     Active Substance: TRAMADOL\TRAMADOL HYDROCHLORIDE
  5. SYSTANE (HYPROMELLOSE 2910 (4000 MPA.S)) [Concomitant]
     Active Substance: HYPROMELLOSE 2910 (4000 MPA.S)
  6. PROCHLORPERAZINE [Concomitant]
     Active Substance: PROCHLORPERAZINE
  7. LEVOTHYROXINE [Concomitant]
     Active Substance: LEVOTHYROXINE\LEVOTHYROXINE SODIUM
  8. KLOR-CON M20 [Concomitant]
     Active Substance: POTASSIUM CHLORIDE
  9. OCUVITE [ASCORBIC ACID;RETINOL;TOCOPHEROL] [Concomitant]
  10. POMALYST [Concomitant]
     Active Substance: POMALIDOMIDE
  11. FLUAD QUADRIVALENT 2020/2021 [Concomitant]
     Active Substance: INFLUENZA A VIRUS A/HONG KONG/2671/2019 IVR-208 (H3N2) ANTIGEN (FORMALDEHYDE INACTIVATED)\INFLUENZA
  12. HYDROXYZINE [Concomitant]
     Active Substance: HYDROXYZINE HYDROCHLORIDE
  13. IXAZOMIB [Concomitant]
     Active Substance: IXAZOMIB
  14. LOSARTAN [Concomitant]
     Active Substance: LOSARTAN
  15. MOMETASONE [Concomitant]
     Active Substance: MOMETASONE
  16. CHOLECALCIFEROL [Concomitant]
     Active Substance: CHOLECALCIFEROL
  17. CALCIUM [Concomitant]
     Active Substance: CALCIUM
  18. ACYCLOVIR [Concomitant]
     Active Substance: ACYCLOVIR
  19. BENZONATATE [Concomitant]
     Active Substance: BENZONATATE
  20. DEXAMETHASONE [Concomitant]
     Active Substance: DEXAMETHASONE
  21. DONEPEZIL [Concomitant]
     Active Substance: DONEPEZIL
  22. EVISTA [Concomitant]
     Active Substance: RALOXIFENE HYDROCHLORIDE
  23. FLUZONE HIGH-DOSE NOS [Concomitant]
     Active Substance: INFLUENZA A VIRUS A/CALIFORNIA/7/2009 X-179A (H1N1) ANTIGEN (FORMALDEHYDE INACTIVATED)\INFLUENZA A V
  24. HYDROXYZINE PAMOATE [Concomitant]
     Active Substance: HYDROXYZINE PAMOATE
  25. MOMETASONE FUROATE [Concomitant]
     Active Substance: MOMETASONE FUROATE
  26. CYCLOPHOSPHAMIDE [Concomitant]
     Active Substance: CYCLOPHOSPHAMIDE
  27. ZETIA [Concomitant]
     Active Substance: EZETIMIBE

REACTIONS (3)
  - Fall [Unknown]
  - Dyspnoea [Unknown]
  - Nausea [Not Recovered/Not Resolved]

NARRATIVE: CASE EVENT DATE: 20231201
